FAERS Safety Report 22519503 (Version 1)
Quarter: 2023Q2

REPORT INFORMATION
  Report Type: Spontaneous
  Country: GB (occurrence: GB)
  Receive Date: 20230605
  Receipt Date: 20230605
  Transmission Date: 20230722
  Serious: Yes (Other)
  Sender: FDA-Public Use
  Company Number: GB-ADVANZ PHARMA-202305003616

PATIENT
  Sex: Female

DRUGS (2)
  1. LIOTHYRONINE [Interacting]
     Active Substance: LIOTHYRONINE
     Indication: Hypothyroidism
     Dosage: 30 MILLIGRAM DAILY;  LONG TERM
     Route: 065
  2. LIOTHYRONINE [Interacting]
     Active Substance: LIOTHYRONINE
     Dosage: UNK (SLOWLY RESTARTED)
     Route: 065

REACTIONS (2)
  - Hyperthyroidism [Recovered/Resolved]
  - Drug interaction [Recovered/Resolved]

NARRATIVE: CASE EVENT DATE: 20230429
